FAERS Safety Report 15721412 (Version 4)
Quarter: 2019Q2

REPORT INFORMATION
  Report Type: Spontaneous
  Country: US (occurrence: US)
  Receive Date: 20181214
  Receipt Date: 20190626
  Transmission Date: 20190711
  Serious: Yes (Hospitalization)
  Sender: FDA-Public Use
  Company Number: US-TAKEDA-2018MPI016892

PATIENT
  Sex: Male

DRUGS (1)
  1. NINLARO [Suspect]
     Active Substance: IXAZOMIB CITRATE
     Indication: PLASMA CELL MYELOMA
     Dosage: 3 MILLIGRAM
     Route: 048
     Dates: start: 20180920

REACTIONS (6)
  - Asthenia [Unknown]
  - Gout [Unknown]
  - Blood glucose decreased [Unknown]
  - Blood culture positive [Unknown]
  - Infection [Unknown]
  - Dialysis [Unknown]
